FAERS Safety Report 17196306 (Version 3)
Quarter: 2020Q4

REPORT INFORMATION
  Report Type: Report from Study
  Country: US (occurrence: US)
  Receive Date: 20191224
  Receipt Date: 20201217
  Transmission Date: 20210113
  Serious: Yes (Other)
  Sender: FDA-Public Use
  Company Number: NVSC2019US075623

PATIENT
  Sex: Male

DRUGS (2)
  1. AFINITOR [Suspect]
     Active Substance: EVEROLIMUS
     Indication: TUBEROUS SCLEROSIS COMPLEX
     Dosage: 8 MG, QD
     Route: 048
     Dates: start: 20191126
  2. AFINITOR [Suspect]
     Active Substance: EVEROLIMUS
     Dosage: 3 MG
     Route: 048

REACTIONS (4)
  - Feeling abnormal [Unknown]
  - Seizure [Not Recovered/Not Resolved]
  - Dysuria [Unknown]
  - Asthenia [Unknown]
